FAERS Safety Report 8021753-X (Version None)
Quarter: 2012Q1

REPORT INFORMATION
  Report Type: 
  Country: None (occurrence: None)
  Receive Date: 20120104
  Receipt Date: 20111226
  Transmission Date: 20120608
  Serious: Yes (Life-Threatening)
  Sender: FDA-Public Use
  Company Number: JP-CEPHALON-2011005450

PATIENT
  Sex: Female
  Weight: 47 kg

DRUGS (8)
  1. BENDAMUSTINE HCL [Suspect]
     Indication: B-CELL LYMPHOMA
     Route: 042
     Dates: start: 20111014
  2. NIFEDIPINE [Concomitant]
     Dates: end: 20111014
  3. TELMISARTAN [Concomitant]
     Dates: end: 20111014
  4. ALLOPURINOL [Concomitant]
     Dates: start: 20111012, end: 20111014
  5. DEXAMETHASONE SODIUM PHOSPHATE [Suspect]
     Dates: start: 20111014, end: 20111014
  6. OMEPRAZOLE [Concomitant]
     Dates: end: 20111014
  7. PREDNISOLONE [Suspect]
     Indication: SPLENIC MARGINAL ZONE LYMPHOMA
     Route: 048
     Dates: start: 20111012
  8. GRANISETRON HCL [Concomitant]
     Dates: start: 20111014, end: 20111014

REACTIONS (1)
  - COLITIS ISCHAEMIC [None]
